FAERS Safety Report 17578546 (Version 6)
Quarter: 2021Q2

REPORT INFORMATION
  Report Type: Report from Study
  Country: BR (occurrence: BR)
  Receive Date: 20200324
  Receipt Date: 20210525
  Transmission Date: 20210716
  Serious: Yes (Other)
  Sender: FDA-Public Use
  Company Number: NVSC2020BR079144

PATIENT
  Age: 79 Year
  Sex: Female

DRUGS (3)
  1. KISQALI [Suspect]
     Active Substance: RIBOCICLIB
     Indication: BREAST CANCER METASTATIC
     Dosage: 3 DF, QD (EVERY DAY AT 10.30 AM, FOR 21 DAYS)(200MG)
     Route: 048
     Dates: start: 20200106
  2. FULVESTRANT. [Suspect]
     Active Substance: FULVESTRANT
     Indication: BREAST CANCER METASTATIC
     Dosage: UNK UNK, QMO
     Route: 065
     Dates: start: 202001
  3. ZOMETA [Suspect]
     Active Substance: ZOLEDRONIC ACID
     Indication: BONE DISORDER
     Dosage: UNK, QMO
     Route: 065
     Dates: start: 202001

REACTIONS (36)
  - Crying [Recovered/Resolved]
  - Dyspnoea [Unknown]
  - Depression [Recovering/Resolving]
  - Varicose vein [Not Recovered/Not Resolved]
  - Lung disorder [Unknown]
  - Paraesthesia [Not Recovered/Not Resolved]
  - Quality of life decreased [Not Recovered/Not Resolved]
  - Asthenia [Unknown]
  - Productive cough [Recovered/Resolved]
  - Hypersensitivity [Not Recovered/Not Resolved]
  - Muscle tightness [Not Recovered/Not Resolved]
  - Tumour marker increased [Recovering/Resolving]
  - Confusional state [Unknown]
  - Affect lability [Not Recovered/Not Resolved]
  - Throat clearing [Recovering/Resolving]
  - Cough [Recovered/Resolved]
  - Overdose [Unknown]
  - Sneezing [Recovered/Resolved]
  - Fatigue [Recovered/Resolved]
  - Thrombosis [Unknown]
  - Metastasis [Unknown]
  - Fear [Unknown]
  - Poor quality sleep [Not Recovered/Not Resolved]
  - Limb discomfort [Unknown]
  - Malaise [Recovered/Resolved]
  - Product dose omission issue [Unknown]
  - Anxiety [Not Recovered/Not Resolved]
  - Tearfulness [Recovered/Resolved]
  - Influenza [Recovered/Resolved]
  - Discomfort [Recovered/Resolved]
  - Poor peripheral circulation [Not Recovered/Not Resolved]
  - Pain [Recovered/Resolved]
  - Peripheral swelling [Recovering/Resolving]
  - Fatigue [Recovered/Resolved]
  - Rash macular [Not Recovered/Not Resolved]
  - Malaise [Recovered/Resolved]

NARRATIVE: CASE EVENT DATE: 202001
